FAERS Safety Report 5929996-3 (Version None)
Quarter: 2008Q4

REPORT INFORMATION
  Report Type: 
  Country: None (occurrence: None)
  Receive Date: 20081024
  Receipt Date: 20081014
  Transmission Date: 20090506
  Serious: Yes (Death, Other)
  Sender: FDA-Public Use
  Company Number: GB-PFIZER INC-2008083766

PATIENT
  Sex: Male

DRUGS (3)
  1. LYRICA [Suspect]
     Indication: NEURALGIA
     Route: 048
     Dates: start: 20080818
  2. MORPHINE [Concomitant]
  3. OXYCONTIN [Concomitant]
     Route: 048

REACTIONS (3)
  - HALLUCINATION [None]
  - MALIGNANT NEOPLASM PROGRESSION [None]
  - SEDATION [None]
